FAERS Safety Report 7508178-8 (Version None)
Quarter: 2011Q2

REPORT INFORMATION
  Report Type: 
  Country: None (occurrence: None)
  Receive Date: 20110519
  Receipt Date: 20110505
  Transmission Date: 20111010
  Serious: Yes (Hospitalization)
  Sender: FDA-Public Use
  Company Number: 2011MA005445

PATIENT
  Age: 67 Year
  Sex: Female

DRUGS (2)
  1. RAMIPRIL [Suspect]
  2. ADALIMUMAB [Concomitant]

REACTIONS (4)
  - CORNEAL ABSCESS [None]
  - PYREXIA [None]
  - PUSTULAR PSORIASIS [None]
  - CHILLS [None]
